FAERS Safety Report 9930609 (Version 2)
Quarter: 2015Q1

REPORT INFORMATION
  Report Type: Report from Study
  Country: US (occurrence: US)
  Receive Date: 20140227
  Receipt Date: 20150219
  Transmission Date: 20150721
  Serious: No
  Sender: FDA-Public Use
  Company Number: US-AMGEN-USASP2013089895

PATIENT
  Age: 35 Year
  Sex: Female

DRUGS (1)
  1. ENBREL [Suspect]
     Active Substance: ETANERCEPT
     Indication: ANKYLOSING SPONDYLITIS
     Dosage: 50 MG, QWK
     Route: 065
     Dates: start: 20130304

REACTIONS (5)
  - Ear infection [Recovered/Resolved]
  - Irritable bowel syndrome [Not Recovered/Not Resolved]
  - Blood urea nitrogen/creatinine ratio increased [Recovered/Resolved]
  - Red blood cell sedimentation rate increased [Not Recovered/Not Resolved]
  - Pharyngitis streptococcal [Recovered/Resolved]

NARRATIVE: CASE EVENT DATE: 2013
